FAERS Safety Report 24586301 (Version 2)
Quarter: 2024Q4

REPORT INFORMATION
  Report Type: Spontaneous
  Country: US (occurrence: US)
  Receive Date: 20241106
  Receipt Date: 20241126
  Transmission Date: 20250114
  Serious: Yes (Life-Threatening, Hospitalization, Other)
  Sender: SANDOZ
  Company Number: US-SANDOZ-SDZ2023US042485

PATIENT
  Age: 45 Year
  Sex: Male

DRUGS (19)
  1. FENTANYL [Suspect]
     Active Substance: FENTANYL
     Indication: Sedation
     Dosage: 2 MCG/KG
     Route: 042
  2. FENTANYL [Suspect]
     Active Substance: FENTANYL
     Dosage: DOSES ADJUSTED TO MAINTAIN RICHMOND AGITATION-SEDATION SCALE (RASS) AT ?4, RANGING FROM 0.7 TO 1 MCG
     Route: 065
  3. FENTANYL [Suspect]
     Active Substance: FENTANYL
     Dosage: DOSES ADJUSTED TO MAINTAIN RICHMOND AGITATION-SEDATION SCALE (RASS) AT ?4, RANGING FROM 0.7 TO 1 MCG
     Route: 065
  4. SUBOXONE [Suspect]
     Active Substance: BUPRENORPHINE HYDROCHLORIDE\NALOXONE HYDROCHLORIDE
     Indication: Product used for unknown indication
     Dosage: 16 MG, QD
     Route: 065
  5. SUBOXONE [Suspect]
     Active Substance: BUPRENORPHINE HYDROCHLORIDE\NALOXONE HYDROCHLORIDE
     Dosage: 4 MG, QD
     Route: 065
  6. AZITHROMYCIN [Concomitant]
     Active Substance: AZITHROMYCIN
     Indication: Product used for unknown indication
     Dosage: 500.000G
     Route: 048
  7. CEFTRIAXONE [Concomitant]
     Active Substance: CEFTRIAXONE
     Indication: Product used for unknown indication
     Dosage: 1.000G
     Route: 042
  8. FENTANYL [Concomitant]
     Active Substance: FENTANYL
     Indication: Analgesic therapy
     Dosage: DRIP
     Route: 065
  9. PROPOFOL [Concomitant]
     Active Substance: PROPOFOL
     Dosage: DOSES ADJUSTED TO MAINTAIN RICHMOND AGITATION-SEDATION SCALE (RASS) AT ?4, RANGING FROM 1 TO 3 MG/KG
     Route: 065
  10. PROPOFOL [Concomitant]
     Active Substance: PROPOFOL
     Dosage: DOSES ADJUSTED TO MAINTAIN RICHMOND AGITATION-SEDATION SCALE (RASS) AT ?4, RANGING FROM 1 TO 3 MG/KG
     Route: 065
  11. PROPOFOL [Concomitant]
     Active Substance: PROPOFOL
     Dosage: DOSES ADJUSTED TO MAINTAIN RICHMOND AGITATION-SEDATION SCALE (RASS) AT ?4, RANGING FROM 1 TO 3 MG/KG
     Route: 065
  12. PROPOFOL [Concomitant]
     Active Substance: PROPOFOL
     Dosage: DOSE OF 3 MG/KG
     Route: 065
  13. PROPOFOL [Concomitant]
     Active Substance: PROPOFOL
     Dosage: DOSE OF 3 MG/KG
     Route: 065
  14. PROPOFOL [Concomitant]
     Active Substance: PROPOFOL
     Dosage: DOSE OF 3 MG/KG
     Route: 065
  15. PROPOFOL [Concomitant]
     Active Substance: PROPOFOL
     Indication: Sedation
     Dosage: DOSES ADJUSTED TO MAINTAIN RICHMOND AGITATION-SEDATION SCALE (RASS) AT ?4, RANGING FROM 1 TO 3 MG/KG
     Route: 065
  16. PROPOFOL [Concomitant]
     Active Substance: PROPOFOL
     Dosage: DOSES ADJUSTED TO MAINTAIN RICHMOND AGITATION-SEDATION SCALE (RASS) AT ?4, RANGING FROM 1 TO 3 MG/KG
     Route: 065
  17. PROPOFOL [Concomitant]
     Active Substance: PROPOFOL
     Dosage: DOSES ADJUSTED TO MAINTAIN RICHMOND AGITATION-SEDATION SCALE (RASS) AT ?4, RANGING FROM 1 TO 3 MG/KG
     Route: 065
  18. AMITRIPTYLINE [Interacting]
     Active Substance: AMITRIPTYLINE
     Indication: Product used for unknown indication
     Route: 065
  19. PREGABALIN [Interacting]
     Active Substance: PREGABALIN
     Indication: Product used for unknown indication
     Route: 065

REACTIONS (3)
  - Mental status changes [Recovering/Resolving]
  - Serotonin syndrome [Recovered/Resolved]
  - Drug interaction [Recovering/Resolving]
